FAERS Safety Report 20930978 (Version 1)
Quarter: 2022Q2

REPORT INFORMATION
  Report Type: Spontaneous
  Country: US (occurrence: None)
  Receive Date: 20220607
  Receipt Date: 20220607
  Transmission Date: 20220721
  Serious: Yes (Other)
  Sender: FDA-Public Use
  Company Number: None

PATIENT
  Age: 71 Year
  Sex: Female
  Weight: 100.74 kg

DRUGS (30)
  1. METFORMIN HYDROCHLORIDE [Suspect]
     Active Substance: METFORMIN HYDROCHLORIDE
     Indication: Glycosylated haemoglobin increased
     Dosage: FREQUENCY : DAILY;?
     Route: 048
     Dates: start: 20210113, end: 20210116
  2. ACCOLATE [Concomitant]
     Active Substance: ZAFIRLUKAST
  3. LIPITOR [Concomitant]
     Active Substance: ATORVASTATIN CALCIUM
  4. RESTASIS [Concomitant]
     Active Substance: CYCLOSPORINE
  5. ATACAND [Concomitant]
     Active Substance: CANDESARTAN CILEXETIL
  6. PREDNISONE [Concomitant]
     Active Substance: PREDNISONE
  7. COMBIVENT RESPIMAT [Concomitant]
     Active Substance: ALBUTEROL SULFATE\IPRATROPIUM BROMIDE
  8. EPIPEN [Concomitant]
     Active Substance: EPINEPHRINE
  9. ALLEGRA [Concomitant]
     Active Substance: FEXOFENADINE HYDROCHLORIDE
  10. FLONASE [Concomitant]
     Active Substance: FLUTICASONE PROPIONATE
  11. UNSPECIFIED INGREDIENT [Concomitant]
     Active Substance: UNSPECIFIED INGREDIENT
  12. CINNAMON\HERBALS [Concomitant]
     Active Substance: CINNAMON\HERBALS
  13. HERBALS\TURMERIC [Concomitant]
     Active Substance: HERBALS\TURMERIC
  14. OLEA EUROPAEA LEAF [Concomitant]
     Active Substance: OLEA EUROPAEA LEAF
  15. DIETARY SUPPLEMENT\GRAPE SEED EXTRACT [Concomitant]
     Active Substance: DIETARY SUPPLEMENT\GRAPE SEED EXTRACT
  16. HERBALS\SPIRULINA [Concomitant]
     Active Substance: HERBALS\SPIRULINA
  17. Psyllium Husk [Concomitant]
  18. MAGNESIUM [Concomitant]
     Active Substance: MAGNESIUM
  19. Odorless Garlic [Concomitant]
  20. Qunol Ultra CoQ10 [Concomitant]
  21. Osteo BiFlex triple strength with Vit D [Concomitant]
  22. I caps with Lutein + Zeaxanthin [Concomitant]
  23. CALCIUM CITRATE\CHOLECALCIFEROL [Concomitant]
     Active Substance: CALCIUM CITRATE\CHOLECALCIFEROL
  24. DIETARY SUPPLEMENT\RESVERATROL [Concomitant]
     Active Substance: DIETARY SUPPLEMENT\RESVERATROL
  25. 5-HTP [Concomitant]
  26. TYLENOL [Concomitant]
     Active Substance: ACETAMINOPHEN
  27. Nutri Biotic Nasal Spray [Concomitant]
  28. ICY HOT [Concomitant]
     Active Substance: MENTHOL\METHYL SALICYLATE
  29. Centrum Silver for Women 50+ [Concomitant]
  30. Natren Healthy Trinity Probiotics [Concomitant]

REACTIONS (15)
  - Headache [None]
  - Eye swelling [None]
  - Visual impairment [None]
  - Gait disturbance [None]
  - Sleep disorder [None]
  - Nausea [None]
  - Abdominal distension [None]
  - Dizziness [None]
  - Gait disturbance [None]
  - Decreased appetite [None]
  - Nasal congestion [None]
  - Sinus disorder [None]
  - Swelling [None]
  - Product substitution issue [None]
  - Hypersensitivity [None]

NARRATIVE: CASE EVENT DATE: 20210113
